FAERS Safety Report 16209000 (Version 1)
Quarter: 2019Q2

REPORT INFORMATION
  Report Type: Other
  Country: AU (occurrence: AU)
  Receive Date: 20190417
  Receipt Date: 20190417
  Transmission Date: 20190711
  Serious: Yes (Death, Other)
  Sender: FDA-Public Use
  Company Number: AU-RARE DISEASE THERAPEUTICS, INC.-2065970

PATIENT
  Age: 42 Year
  Sex: Male

DRUGS (2)
  1. PURIXAN [Suspect]
     Active Substance: MERCAPTOPURINE
     Indication: CROHN^S DISEASE
     Route: 065
  2. HYDROCORTISONE. [Concomitant]
     Active Substance: HYDROCORTISONE
     Route: 042

REACTIONS (9)
  - Affective disorder [Not Recovered/Not Resolved]
  - Product monitoring error [None]
  - Multiple organ dysfunction syndrome [Fatal]
  - Gastric disorder [Not Recovered/Not Resolved]
  - Diarrhoea haemorrhagic [Not Recovered/Not Resolved]
  - Septic shock [Not Recovered/Not Resolved]
  - Pancytopenia [Not Recovered/Not Resolved]
  - Off label use [None]
  - Bacteraemia [Not Recovered/Not Resolved]
